FAERS Safety Report 13439689 (Version 2)
Quarter: 2017Q2

REPORT INFORMATION
  Report Type: Spontaneous
  Country: CA (occurrence: CA)
  Receive Date: 20170413
  Receipt Date: 20170510
  Transmission Date: 20170830
  Serious: Yes (Hospitalization)
  Sender: FDA-Public Use
  Company Number: CA-BAXTER-2017BAX015685

PATIENT
  Age: 48 Year
  Sex: Female
  Weight: 106.9 kg

DRUGS (47)
  1. TYLENOL WITH CODEINE [Suspect]
     Active Substance: ACETAMINOPHEN\CODEINE PHOSPHATE
     Indication: TARDIVE DYSKINESIA
     Dosage: 1 OR 2 TABLETS EVERY 4 HOURS
     Route: 065
     Dates: start: 20170209
  2. ONDANSETRON [Suspect]
     Active Substance: ONDANSETRON
     Indication: SUPPORTIVE CARE
     Dosage: BEFORE CHEMOTHERAPY AND AFTER 12 HOURS CHEMOTHERAPY
     Route: 048
     Dates: start: 20161215, end: 20161215
  3. APREPITANT. [Suspect]
     Active Substance: APREPITANT
     Indication: SUPPORTIVE CARE
     Dosage: BEFORE CYCLOPHOSPHAMIDE AND DOXORUBICIN
     Route: 048
     Dates: start: 20161215, end: 20161215
  4. APREPITANT. [Suspect]
     Active Substance: APREPITANT
     Dosage: BEFORE CYCLOPHOSPHAMIDE AND DOXORUBICIN
     Route: 048
     Dates: start: 20170112, end: 20170112
  5. APREPITANT. [Suspect]
     Active Substance: APREPITANT
     Dosage: BEFORE CYCLOPHOSPHAMIDE AND DOXORUBICIN
     Route: 048
     Dates: start: 20170126, end: 20170126
  6. APREPITANT. [Suspect]
     Active Substance: APREPITANT
     Route: 048
     Dates: start: 20170331, end: 20170401
  7. PEGFILGRASTIM [Suspect]
     Active Substance: PEGFILGRASTIM
     Route: 058
     Dates: start: 20170401, end: 20170401
  8. TRASTUZUMAB [Suspect]
     Active Substance: TRASTUZUMAB
     Route: 065
     Dates: start: 20170316, end: 20170316
  9. ONDANSETRON [Suspect]
     Active Substance: ONDANSETRON
     Dosage: BEFORE CHEMOTHERAPY AND AFTER 12 HOURS CHEMOTHERAPY
     Route: 048
     Dates: start: 20170126, end: 20170126
  10. ONDANSETRON [Suspect]
     Active Substance: ONDANSETRON
     Dosage: BEFORE CHEMOTHERAPY AND AFTER 12 HOURS CHEMOTHERAPY
     Route: 048
     Dates: start: 20170330, end: 20170330
  11. DEXAMETHASONE. [Suspect]
     Active Substance: DEXAMETHASONE
     Route: 048
     Dates: start: 20170315, end: 20170316
  12. ENOXAPARIN [Suspect]
     Active Substance: ENOXAPARIN
     Indication: TARDIVE DYSKINESIA
     Route: 058
     Dates: start: 20161222
  13. LEVOFLOXACIN. [Suspect]
     Active Substance: LEVOFLOXACIN
     Indication: TARDIVE DYSKINESIA
     Route: 048
     Dates: start: 20170209
  14. LORAZEPAM. [Suspect]
     Active Substance: LORAZEPAM
     Indication: TARDIVE DYSKINESIA
     Route: 048
     Dates: start: 20170123
  15. METOCLOPRAMIDE. [Suspect]
     Active Substance: METOCLOPRAMIDE
     Indication: TARDIVE DYSKINESIA
     Dosage: AS NEEDED
     Route: 048
     Dates: start: 20161208
  16. TRASTUZUMAB [Suspect]
     Active Substance: TRASTUZUMAB
     Indication: TARDIVE DYSKINESIA
     Route: 065
     Dates: start: 20170209, end: 20170209
  17. ONDANSETRON [Suspect]
     Active Substance: ONDANSETRON
     Dosage: BEFORE CHEMOTHERAPY AND AFTER 12 HOURS CHEMOTHERAPY
     Route: 048
     Dates: start: 20161230, end: 20161230
  18. PEGFILGRASTIM [Suspect]
     Active Substance: PEGFILGRASTIM
     Route: 058
     Dates: start: 20170304, end: 20170304
  19. FILGRASTIM [Suspect]
     Active Substance: FILGRASTIM
     Route: 065
     Dates: start: 20170101
  20. PROCYTOX (CYCLOPHOSPHAMIDE) 2000MG/VIAL [Suspect]
     Active Substance: CYCLOPHOSPHAMIDE
     Indication: BREAST CANCER
     Route: 042
     Dates: start: 20161201, end: 20170126
  21. PACLITAXEL. [Suspect]
     Active Substance: PACLITAXEL
     Route: 042
     Dates: start: 20170302, end: 20170316
  22. PACLITAXEL. [Suspect]
     Active Substance: PACLITAXEL
     Route: 042
     Dates: start: 20170330, end: 20170330
  23. TRASTUZUMAB [Suspect]
     Active Substance: TRASTUZUMAB
     Route: 065
     Dates: start: 20170302, end: 20170302
  24. TRASTUZUMAB [Suspect]
     Active Substance: TRASTUZUMAB
     Route: 065
     Dates: start: 20170330, end: 20170330
  25. ONDANSETRON [Suspect]
     Active Substance: ONDANSETRON
     Dosage: BEFORE CHEMOTHERAPY AND AFTER 12 HOURS CHEMOTHERAPY
     Route: 048
     Dates: start: 20170112, end: 20170112
  26. ONDANSETRON [Suspect]
     Active Substance: ONDANSETRON
     Dosage: BEFORE CHEMOTHERAPY AND AFTER 12 HOURS CHEMOTHERAPY
     Route: 048
     Dates: start: 20170302, end: 20170302
  27. APREPITANT. [Suspect]
     Active Substance: APREPITANT
     Dosage: BEFORE CYCLOPHOSPHAMIDE AND DOXORUBICIN
     Route: 048
     Dates: start: 20161230, end: 20161230
  28. APREPITANT. [Suspect]
     Active Substance: APREPITANT
     Route: 048
     Dates: start: 20170210, end: 20170211
  29. APREPITANT. [Suspect]
     Active Substance: APREPITANT
     Route: 048
     Dates: start: 20170317, end: 20170318
  30. DEXAMETHASONE. [Suspect]
     Active Substance: DEXAMETHASONE
     Route: 048
     Dates: start: 20170301, end: 20170302
  31. DEXAMETHASONE. [Suspect]
     Active Substance: DEXAMETHASONE
     Route: 048
     Dates: start: 20170329, end: 20170330
  32. PEGFILGRASTIM [Suspect]
     Active Substance: PEGFILGRASTIM
     Route: 058
     Dates: start: 20170211, end: 20170211
  33. DOXORUBICINE [Suspect]
     Active Substance: DOXORUBICIN
     Indication: BREAST CANCER
     Route: 042
     Dates: start: 20161215, end: 20170126
  34. APREPITANT. [Suspect]
     Active Substance: APREPITANT
     Route: 048
     Dates: start: 20170113, end: 20170114
  35. PACLITAXEL. [Suspect]
     Active Substance: PACLITAXEL
     Indication: BREAST CANCER
     Route: 042
     Dates: start: 20170209
  36. ONDANSETRON [Suspect]
     Active Substance: ONDANSETRON
     Dosage: BEFORE CHEMOTHERAPY AND AFTER 12 HOURS CHEMOTHERAPY
     Route: 048
     Dates: start: 20170209, end: 20170209
  37. ONDANSETRON [Suspect]
     Active Substance: ONDANSETRON
     Dosage: BEFORE CHEMOTHERAPY AND AFTER 12 HOURS CHEMOTHERAPY
     Route: 048
     Dates: start: 20170316, end: 20170316
  38. APREPITANT. [Suspect]
     Active Substance: APREPITANT
     Route: 048
     Dates: start: 20161216, end: 20161217
  39. APREPITANT. [Suspect]
     Active Substance: APREPITANT
     Route: 048
     Dates: start: 20161231, end: 20170101
  40. APREPITANT. [Suspect]
     Active Substance: APREPITANT
     Route: 048
     Dates: start: 20170303, end: 20170304
  41. PEGFILGRASTIM [Suspect]
     Active Substance: PEGFILGRASTIM
     Indication: SUPPORTIVE CARE
     Route: 058
     Dates: start: 20170128, end: 20170128
  42. PEGFILGRASTIM [Suspect]
     Active Substance: PEGFILGRASTIM
     Route: 058
     Dates: start: 20170318, end: 20170318
  43. FILGRASTIM [Suspect]
     Active Substance: FILGRASTIM
     Route: 065
     Dates: start: 20170114
  44. BETAMETHASONE. [Suspect]
     Active Substance: BETAMETHASONE
     Indication: TARDIVE DYSKINESIA
     Dosage: DOSAGE FORM: LOTION, AS NEEDED
     Route: 065
     Dates: start: 20170209
  45. RANITIDINE. [Suspect]
     Active Substance: RANITIDINE
     Indication: TARDIVE DYSKINESIA
     Route: 048
     Dates: start: 20170112
  46. DEXAMETHASONE. [Suspect]
     Active Substance: DEXAMETHASONE
     Indication: SUPPORTIVE CARE
     Route: 048
     Dates: start: 20170208, end: 20170209
  47. FILGRASTIM [Suspect]
     Active Substance: FILGRASTIM
     Indication: SUPPORTIVE CARE
     Route: 065
     Dates: start: 20161217

REACTIONS (10)
  - Pyrexia [Recovered/Resolved]
  - Hypoxia [Recovered/Resolved]
  - Atelectasis [Unknown]
  - Rash [Unknown]
  - Gastrointestinal disorder [Recovered/Resolved]
  - Cough [Recovered/Resolved]
  - Fatigue [Recovered/Resolved]
  - Dyspnoea [Recovered/Resolved]
  - Nausea [Recovered/Resolved]
  - Computerised tomogram thorax abnormal [Recovered/Resolved]

NARRATIVE: CASE EVENT DATE: 20170209
